FAERS Safety Report 8184890-5 (Version None)
Quarter: 2012Q1

REPORT INFORMATION
  Report Type: 
  Country: None (occurrence: None)
  Receive Date: 20120305
  Receipt Date: 20120301
  Transmission Date: 20120608
  Serious: Yes (Hospitalization)
  Sender: FDA-Public Use
  Company Number: US-GLAXOSMITHKLINE-A0898649A

PATIENT
  Age: 62 Year
  Sex: Male
  Weight: 93.2 kg

DRUGS (5)
  1. INSULIN [Concomitant]
  2. LIPITOR [Concomitant]
  3. AVANDIA [Suspect]
     Indication: TYPE 2 DIABETES MELLITUS
     Dosage: 4MG PER DAY
     Route: 048
     Dates: start: 20041119, end: 20041219
  4. AVANDAMET [Suspect]
     Indication: DIABETES MELLITUS
     Dosage: 1TAB AT NIGHT
     Route: 048
  5. ALTACE [Concomitant]

REACTIONS (2)
  - ARTERIOSCLEROSIS [None]
  - MYOCARDIAL INFARCTION [None]
